FAERS Safety Report 18314924 (Version 1)
Quarter: 2020Q3

REPORT INFORMATION
  Report Type: Spontaneous
  Country: RU (occurrence: RU)
  Receive Date: 20200925
  Receipt Date: 20200925
  Transmission Date: 20201103
  Serious: Yes (Other)
  Sender: FDA-Public Use
  Company Number: RU-ASTRAZENECA-2020SF21912

PATIENT
  Age: 65 Year
  Sex: Female

DRUGS (2)
  1. OMEPRAZOLE. [Suspect]
     Active Substance: OMEPRAZOLE
     Route: 048
  2. CEFTRIAXON [Suspect]
     Active Substance: CEFTRIAXONE
     Route: 042

REACTIONS (3)
  - Myocardial infarction [Unknown]
  - Clostridium difficile infection [Unknown]
  - Leukocytosis [Unknown]
